FAERS Safety Report 25826230 (Version 2)
Quarter: 2025Q4

REPORT INFORMATION
  Report Type: Report from Study
  Country: EU (occurrence: EU)
  Receive Date: 20250919
  Receipt Date: 20251216
  Transmission Date: 20260118
  Serious: Yes (Hospitalization)
  Sender: ABBVIE
  Company Number: EU-ABBVIE-6462138

PATIENT
  Age: 74 Year
  Sex: Male
  Weight: 57 kg

DRUGS (12)
  1. FOSCARBIDOPA\FOSLEVODOPA [Suspect]
     Active Substance: FOSCARBIDOPA\FOSLEVODOPA
     Indication: Parkinson^s disease
     Dosage: LOADING DOSE DRUG: 0.32 ML?CONTINUOUS RATE PUMP SETTING BASE 0.32 ML/H?CONTINUOUS RATE PUMP SETTI...
     Route: 058
     Dates: start: 20240322
  2. FLUTICASONA INHALATORY [Concomitant]
     Indication: Inhalation therapy
     Dosage: DOSE-  184/22 UG
     Route: 055
     Dates: start: 20181003
  3. ATROVENT AEROSOL [Concomitant]
     Indication: Bronchiectasis
     Route: 055
     Dates: start: 20200612
  4. PYRIDOXINE [Concomitant]
     Active Substance: PYRIDOXINE
     Indication: Vitamin B6 decreased
     Route: 048
     Dates: start: 20191219
  5. PREDNISONE [Concomitant]
     Active Substance: PREDNISONE
     Indication: Product used for unknown indication
     Route: 048
     Dates: start: 20210416
  6. NATECAL-D [Concomitant]
     Indication: Polymyalgia rheumatica
     Route: 048
     Dates: start: 20210714
  7. OMEPRAZOLE [Concomitant]
     Active Substance: OMEPRAZOLE
     Indication: Gastrointestinal disorder prophylaxis
     Route: 048
     Dates: start: 20211117
  8. TAMSULOSINE/SOLIFENACINE AB [Concomitant]
     Indication: Benign prostatic hyperplasia
     Dosage: DOSE UNIT: MG
     Route: 048
     Dates: start: 202304
  9. NAPROXEN [Concomitant]
     Active Substance: NAPROXEN
     Indication: Pain prophylaxis
     Route: 048
  10. PRAMIPEXOLE [Concomitant]
     Active Substance: PRAMIPEXOLE
     Indication: Parkinson^s disease
     Route: 048
     Dates: start: 20230907, end: 20240320
  11. PRAMIPEXOLE [Concomitant]
     Active Substance: PRAMIPEXOLE
     Indication: Parkinson^s disease
     Route: 048
     Dates: start: 20240321
  12. SAFINAMIDE [Concomitant]
     Active Substance: SAFINAMIDE
     Indication: Parkinson^s disease
     Route: 048
     Dates: start: 20081108

REACTIONS (1)
  - Lumbar spinal stenosis [Recovered/Resolved]

NARRATIVE: CASE EVENT DATE: 20250710
